FAERS Safety Report 6917201-0 (Version None)
Quarter: 2010Q3

REPORT INFORMATION
  Report Type: 
  Country: None (occurrence: None)
  Receive Date: 20100804
  Receipt Date: 20100722
  Transmission Date: 20110219
  Serious: Yes (Other)
  Sender: FDA-Public Use
  Company Number: 7007192

PATIENT
  Age: 6 Year
  Sex: Male

DRUGS (1)
  1. SAIZEN [Suspect]
     Indication: GROWTH HORMONE DEFICIENCY
     Dosage: 1.1 MG
     Dates: start: 20090901

REACTIONS (3)
  - BACK PAIN [None]
  - HYDRONEPHROSIS [None]
  - RENAL COLIC [None]
